FAERS Safety Report 10944395 (Version 1)
Quarter: 2015Q1

REPORT INFORMATION
  Report Type: Report from Study
  Country: FR (occurrence: FR)
  Receive Date: 20150323
  Receipt Date: 20150323
  Transmission Date: 20150721
  Serious: Yes (Hospitalization, Other)
  Sender: FDA-Public Use
  Company Number: FR-ROCHE-1162514

PATIENT
  Age: 77 Year
  Sex: Female

DRUGS (14)
  1. RITUXIMAB [Suspect]
     Active Substance: RITUXIMAB
     Route: 042
     Dates: start: 20070725
  2. RITUXIMAB [Suspect]
     Active Substance: RITUXIMAB
     Route: 042
     Dates: start: 20080307
  3. RITUXIMAB [Suspect]
     Active Substance: RITUXIMAB
     Route: 042
     Dates: start: 20070810
  4. CORTANCYL [Concomitant]
     Active Substance: PREDNISONE
     Route: 065
  5. RITUXIMAB [Suspect]
     Active Substance: RITUXIMAB
     Route: 042
     Dates: start: 20080219
  6. RITUXIMAB [Suspect]
     Active Substance: RITUXIMAB
     Route: 042
     Dates: start: 20090422
  7. RITUXIMAB [Suspect]
     Active Substance: RITUXIMAB
     Route: 042
     Dates: start: 20091222
  8. RITUXIMAB [Suspect]
     Active Substance: RITUXIMAB
     Indication: RHEUMATOID ARTHRITIS
     Route: 042
     Dates: start: 20061218
  9. RITUXIMAB [Suspect]
     Active Substance: RITUXIMAB
     Route: 042
     Dates: start: 20090507
  10. RITUXIMAB [Suspect]
     Active Substance: RITUXIMAB
     Route: 042
     Dates: start: 20110705
  11. METHOTREXATE [Concomitant]
     Active Substance: METHOTREXATE
  12. RITUXIMAB [Suspect]
     Active Substance: RITUXIMAB
     Route: 042
     Dates: start: 20070103
  13. RITUXIMAB [Suspect]
     Active Substance: RITUXIMAB
     Route: 042
     Dates: start: 20100104
  14. RITUXIMAB [Suspect]
     Active Substance: RITUXIMAB
     Route: 042
     Dates: start: 20110720

REACTIONS (17)
  - Genital herpes [Unknown]
  - Tenosynovitis [Recovered/Resolved]
  - Osteoporotic fracture [Recovered/Resolved]
  - Hip fracture [Recovering/Resolving]
  - Malaise [Recovered/Resolved]
  - Genital herpes [Not Recovered/Not Resolved]
  - Neutropenia [Unknown]
  - Rhinitis [Recovered/Resolved]
  - Fall [Unknown]
  - Paronychia [Recovered/Resolved]
  - Back pain [Not Recovered/Not Resolved]
  - Tendonitis [Recovered/Resolved]
  - Upper limb fracture [Recovered/Resolved]
  - Bronchopneumonia [Recovered/Resolved]
  - Infusion related reaction [Recovered/Resolved]
  - Tooth abscess [Recovered/Resolved]
  - Transaminases increased [Recovered/Resolved]

NARRATIVE: CASE EVENT DATE: 200705
